FAERS Safety Report 8318914-9 (Version None)
Quarter: 2012Q2

REPORT INFORMATION
  Report Type: 
  Country: None (occurrence: None)
  Receive Date: 20120427
  Receipt Date: 20120417
  Transmission Date: 20120825
  Serious: Yes (Other)
  Sender: FDA-Public Use
  Company Number: US-BAYER-2012-037848

PATIENT
  Age: 69 Year
  Sex: Male
  Weight: 92 kg

DRUGS (3)
  1. LOSARTAN POTASSIUM [Concomitant]
  2. ALKA-SELTZER PLUS COLD FORMULA ORANGE ZEST [Suspect]
     Dosage: 2 DF, ONCE
     Route: 048
     Dates: start: 20120401
  3. ALKA-SELTZER COLD FORMULA CHERRY BURST [Suspect]
     Indication: NASOPHARYNGITIS
     Dosage: 2 DF, ONCE
     Route: 048
     Dates: start: 20120401

REACTIONS (1)
  - GASTRIC HAEMORRHAGE [None]
